FAERS Safety Report 5300067-2 (Version None)
Quarter: 2007Q2

REPORT INFORMATION
  Report Type: 
  Country: None (occurrence: None)
  Receive Date: 20070410
  Receipt Date: 20070402
  Transmission Date: 20071010
  Serious: Yes (Other)
  Sender: FDA-Public Use
  Company Number: A0646013A

PATIENT
  Age: 66 Year
  Sex: Female

DRUGS (1)
  1. MALARONE [Suspect]
     Dates: start: 20070301, end: 20070301

REACTIONS (2)
  - EPISTAXIS [None]
  - VAGINAL HAEMORRHAGE [None]
